FAERS Safety Report 24797661 (Version 5)
Quarter: 2025Q1

REPORT INFORMATION
  Report Type: Spontaneous
  Country: PT (occurrence: PT)
  Receive Date: 20250102
  Receipt Date: 20250123
  Transmission Date: 20250409
  Serious: Yes (Hospitalization, Other)
  Sender: AUROBINDO
  Company Number: PT-DSJP-DS-2024-115081-PT

PATIENT
  Age: 64 Year
  Sex: Female

DRUGS (2)
  1. HYDROCHLOROTHIAZIDE\OLMESARTAN MEDOXOMIL [Suspect]
     Active Substance: HYDROCHLOROTHIAZIDE\OLMESARTAN MEDOXOMIL
     Indication: Essential hypertension
     Route: 065
  2. HYDROCHLOROTHIAZIDE [Concomitant]
     Active Substance: HYDROCHLOROTHIAZIDE
     Indication: Essential hypertension
     Route: 065

REACTIONS (4)
  - Acute kidney injury [Recovered/Resolved]
  - Sprue-like enteropathy [Recovered/Resolved]
  - Gastrointestinal disorder [Recovered/Resolved]
  - Metabolic acidosis [Recovered/Resolved]
